FAERS Safety Report 14305457 (Version 1)
Quarter: 2017Q4

REPORT INFORMATION
  Report Type: Spontaneous
  Country: JP (occurrence: JP)
  Receive Date: 20171219
  Receipt Date: 20171219
  Transmission Date: 20180321
  Serious: Yes (Hospitalization)
  Sender: FDA-Public Use
  Company Number: JP-OTSUKA-03100-JPN-06-0218

PATIENT
  Age: 62 Year
  Sex: Female
  Weight: 46 kg

DRUGS (8)
  1. ABILIFY [Suspect]
     Active Substance: ARIPIPRAZOLE
     Dosage: 6 MG, QD
     Route: 048
     Dates: start: 20060712, end: 20060717
  2. CARBIDOPA AND LEVODOPA [Concomitant]
     Active Substance: CARBIDOPA\LEVODOPA
     Indication: LOSS OF PERSONAL INDEPENDENCE IN DAILY ACTIVITIES
     Dosage: 300 MG, QD
     Route: 048
     Dates: start: 20060724
  3. OLANZAPINE. [Concomitant]
     Active Substance: OLANZAPINE
     Indication: DELUSION
     Dosage: 10 MG, QD
     Route: 048
     Dates: start: 20060522, end: 20060711
  4. ABILIFY [Suspect]
     Active Substance: ARIPIPRAZOLE
     Dosage: 12 MG, QD
     Route: 048
     Dates: start: 20060718, end: 20060725
  5. OLANZAPINE. [Concomitant]
     Active Substance: OLANZAPINE
     Indication: HALLUCINATION
     Dosage: 5 MG, QD
     Route: 048
     Dates: start: 20060712, end: 20060718
  6. ZYPREXA [Concomitant]
     Active Substance: OLANZAPINE
     Dosage: 10 MG, QD
     Route: 048
     Dates: start: 20060522, end: 20060711
  7. ZYPREXA [Concomitant]
     Active Substance: OLANZAPINE
     Dosage: 5 MG, QD
     Route: 048
     Dates: start: 20060712, end: 20060718
  8. LENDORMIN [Concomitant]
     Active Substance: BROTIZOLAM
     Dosage: 0.25 MG, QD
     Route: 048
     Dates: start: 20060517

REACTIONS (1)
  - Parkinsonism [Recovered/Resolved]

NARRATIVE: CASE EVENT DATE: 20060719
